FAERS Safety Report 5703631-1 (Version None)
Quarter: 2008Q2

REPORT INFORMATION
  Report Type: 
  Country: None (occurrence: None)
  Receive Date: 20080411
  Receipt Date: 20080410
  Transmission Date: 20081010
  Serious: Yes (Death)
  Sender: FDA-Public Use
  Company Number: US-GILEAD-2008-0015848

PATIENT
  Sex: Male
  Weight: 127.12 kg

DRUGS (10)
  1. LETAIRIS [Suspect]
     Indication: PULMONARY HYPERTENSION
     Route: 048
     Dates: start: 20080208
  2. ZOLOFT [Concomitant]
     Route: 048
  3. LANTUS [Concomitant]
     Route: 058
  4. WELLBUTRIN [Concomitant]
     Route: 048
  5. WELLBUTRIN [Concomitant]
     Route: 048
  6. LEVOTHYROXINE SODIUM [Concomitant]
     Route: 048
  7. LEVOTHYROXINE SODIUM [Concomitant]
     Route: 048
  8. FLOMAX [Concomitant]
     Route: 048
  9. ADVAIR HFA [Concomitant]
     Dosage: 500/50
     Route: 055
  10. CLONAZEPAM [Concomitant]
     Route: 048

REACTIONS (3)
  - BLOOD GLUCOSE DECREASED [None]
  - BLOOD GLUCOSE INCREASED [None]
  - DEATH [None]
